FAERS Safety Report 11628180 (Version 1)
Quarter: 2015Q4

REPORT INFORMATION
  Report Type: Spontaneous
  Country: US (occurrence: LB)
  Receive Date: 20151013
  Receipt Date: 20151013
  Transmission Date: 20160304
  Serious: Yes (Death, Hospitalization)
  Sender: FDA-Public Use
  Company Number: None

PATIENT
  Age: 57 Year
  Sex: Female
  Weight: 49.9 kg

DRUGS (1)
  1. AZITHROMYCIN [Suspect]
     Active Substance: AZITHROMYCIN ANHYDROUS
     Indication: NASOPHARYNGITIS
     Dosage: 2 TABLETS DAYS ONE, 1X 2-5 DAYS?ONCE DAILY?TAKEN BY MOUTH
     Route: 048
     Dates: start: 20150504, end: 20150508

REACTIONS (1)
  - Product quality issue [None]
